FAERS Safety Report 8341528-1 (Version None)
Quarter: 2012Q2

REPORT INFORMATION
  Report Type: 
  Country: None (occurrence: None)
  Receive Date: 20120507
  Receipt Date: 20120427
  Transmission Date: 20120825
  Serious: Yes (Other)
  Sender: FDA-Public Use
  Company Number: US-ASTRAZENECA-2010SE08198

PATIENT
  Age: 53 Year
  Sex: Female
  Weight: 81.6 kg

DRUGS (18)
  1. PROGESTERINE IUD [Concomitant]
  2. MEVACOR [Concomitant]
  3. XANAX [Concomitant]
  4. CRESTOR [Interacting]
     Route: 048
     Dates: start: 20050201
  5. CRESTOR [Interacting]
     Route: 048
  6. CRESTOR [Interacting]
     Route: 048
     Dates: start: 20040101, end: 20110801
  7. PREDNISONE [Concomitant]
  8. NEXIUM [Interacting]
     Route: 048
     Dates: end: 20111223
  9. NEXIUM [Interacting]
     Dosage: ONCE A DAY
     Route: 048
  10. ATACAND [Suspect]
     Route: 048
  11. ZETIA [Suspect]
     Route: 065
     Dates: start: 20040101, end: 20100301
  12. NEXIUM [Interacting]
     Dosage: TWO TIMES A DAY
     Route: 048
  13. NEXIUM [Interacting]
     Dosage: ONCE A DAY
     Route: 048
  14. PRILOSEC OTC [Suspect]
     Route: 048
  15. VERALANCE [Concomitant]
  16. ZITHROMAX [Concomitant]
     Indication: SINUSITIS
     Dates: end: 20050227
  17. CRESTOR [Interacting]
     Indication: BLOOD CHOLESTEROL INCREASED
     Route: 048
     Dates: start: 20040101
  18. CRESTOR [Interacting]
     Route: 048

REACTIONS (25)
  - ASTHENIA [None]
  - MYALGIA [None]
  - ABDOMINAL PAIN UPPER [None]
  - ILL-DEFINED DISORDER [None]
  - SINUSITIS [None]
  - PAIN [None]
  - MUSCULOSKELETAL CHEST PAIN [None]
  - PAIN IN EXTREMITY [None]
  - MALAISE [None]
  - ARTHRALGIA [None]
  - FRACTURED COCCYX [None]
  - FLUSHING [None]
  - MUSCLE DISORDER [None]
  - WEIGHT DECREASED [None]
  - NAUSEA [None]
  - INSOMNIA [None]
  - SOMNOLENCE [None]
  - MUSCULOSKELETAL PAIN [None]
  - VISION BLURRED [None]
  - HERPES ZOSTER [None]
  - VOMITING [None]
  - DRUG INTERACTION [None]
  - TENDON RUPTURE [None]
  - GASTRIC DISORDER [None]
  - FATIGUE [None]
